FAERS Safety Report 5642461-6 (Version None)
Quarter: 2008Q1

REPORT INFORMATION
  Report Type: 
  Country: None (occurrence: None)
  Receive Date: 20080228
  Receipt Date: 20080220
  Transmission Date: 20080703
  Serious: Yes (Hospitalization)
  Sender: FDA-Public Use
  Company Number: US-JNJFOC-20080205142

PATIENT
  Age: 46 Year
  Sex: Female

DRUGS (2)
  1. INVEGA [Suspect]
     Route: 048
  2. INVEGA [Suspect]
     Indication: SCHIZOAFFECTIVE DISORDER
     Route: 048

REACTIONS (7)
  - ANOREXIA [None]
  - ANXIETY [None]
  - CHANGE OF BOWEL HABIT [None]
  - NERVOUSNESS [None]
  - PANIC ATTACK [None]
  - SMOKER [None]
  - WEIGHT DECREASED [None]
